FAERS Safety Report 21305800 (Version 1)
Quarter: 2022Q3

REPORT INFORMATION
  Report Type: Spontaneous
  Country: CN (occurrence: None)
  Receive Date: 20220908
  Receipt Date: 20220908
  Transmission Date: 20221027
  Serious: Yes (Hospitalization)
  Sender: FDA-Public Use
  Company Number: CN-ROCHE-3173930

PATIENT
  Age: 44 Year
  Sex: Female

DRUGS (2)
  1. XELODA [Suspect]
     Active Substance: CAPECITABINE
     Indication: Breast cancer
     Route: 048
     Dates: start: 20220720
  2. PACLITAXEL [Suspect]
     Active Substance: PACLITAXEL
     Indication: Breast cancer
     Route: 041
     Dates: start: 20220720

REACTIONS (3)
  - Hypoaesthesia [Unknown]
  - Limb discomfort [Unknown]
  - Hypoaesthesia oral [Unknown]

NARRATIVE: CASE EVENT DATE: 20220824
